FAERS Safety Report 14326959 (Version 1)
Quarter: 2017Q4

REPORT INFORMATION
  Report Type: Report from Study
  Country: DE (occurrence: DE)
  Receive Date: 20171227
  Receipt Date: 20171227
  Transmission Date: 20180321
  Serious: Yes (Death, Hospitalization)
  Sender: FDA-Public Use
  Company Number: DE-ORION CORPORATION ORION PHARMA-TREX2017-4194

PATIENT
  Age: 69 Year
  Sex: Female

DRUGS (10)
  1. RASILEZ [Concomitant]
     Active Substance: ALISKIREN
     Dosage: STRENGTH: 150 MG
     Route: 065
  2. DEKRISTOL [Concomitant]
     Active Substance: CHOLECALCIFEROL
     Route: 065
  3. METHOTREXATE (TRADE NAME UNKNOWN) [Suspect]
     Active Substance: METHOTREXATE
     Indication: RHEUMATOID ARTHRITIS
     Route: 048
     Dates: start: 200809
  4. PLAVIX [Concomitant]
     Active Substance: CLOPIDOGREL BISULFATE
     Route: 065
     Dates: start: 201004
  5. FOLSAN [Concomitant]
     Active Substance: FOLIC ACID
     Route: 065
     Dates: start: 200809
  6. LEVOTHYROXINE. [Concomitant]
     Active Substance: LEVOTHYROXINE
     Route: 065
  7. PREDNISOLONE. [Concomitant]
     Active Substance: PREDNISOLONE
     Route: 065
  8. RASILEZ [Concomitant]
     Active Substance: ALISKIREN
     Route: 065
  9. MABTHERA [Suspect]
     Active Substance: RITUXIMAB
     Indication: RHEUMATOID ARTHRITIS
     Dosage: CUMULATIVE DOSE TO FIRST REACTION: 6000 MG; LAST ADMINISTRATION PRIOR TO THE EVENT: 30-AUG-2010 DOSE
     Route: 042
  10. LANSOPRAZOLE. [Concomitant]
     Active Substance: LANSOPRAZOLE
     Route: 065

REACTIONS (4)
  - Anal prolapse [Recovered/Resolved]
  - Rectocele [Recovered/Resolved]
  - Death [Fatal]
  - Stent placement [Recovered/Resolved]

NARRATIVE: CASE EVENT DATE: 201004
